FAERS Safety Report 5371083-X (Version None)
Quarter: 2007Q2

REPORT INFORMATION
  Report Type: 
  Country: None (occurrence: None)
  Receive Date: 20070626
  Receipt Date: 20070612
  Transmission Date: 20071010
  Serious: Yes (Other)
  Sender: FDA-Public Use
  Company Number: IN-BAUSCH-2007BL001969

PATIENT
  Age: 8 Year
  Sex: Male

DRUGS (2)
  1. OFLOXACIN OPHTHALMIC SOLUTION 0.3% [Suspect]
     Indication: TYPHOID FEVER
     Route: 048
  2. ACETAMINOPHEN [Concomitant]
     Indication: PYREXIA

REACTIONS (1)
  - ARTHROPATHY [None]
